FAERS Safety Report 10266213 (Version 1)
Quarter: 2014Q2

REPORT INFORMATION
  Report Type: Report from Study
  Country: BR (occurrence: BR)
  Receive Date: 20140627
  Receipt Date: 20140627
  Transmission Date: 20141212
  Serious: Yes (Other)
  Sender: FDA-Public Use
  Company Number: BR-ABBVIE-14P-020-1250009-00

PATIENT
  Sex: Female
  Weight: 60 kg

DRUGS (2)
  1. HUMIRA [Suspect]
     Indication: CROHN^S DISEASE
     Dosage: UNSPECIFIED LOADING DOSE
     Route: 058
     Dates: start: 20081201
  2. HUMIRA [Suspect]
     Route: 058

REACTIONS (3)
  - Adverse event [Not Recovered/Not Resolved]
  - Gastritis [Unknown]
  - Inflammatory marker increased [Unknown]
